FAERS Safety Report 16985811 (Version 3)
Quarter: 2020Q2

REPORT INFORMATION
  Report Type: Spontaneous
  Country: US (occurrence: US)
  Receive Date: 20191101
  Receipt Date: 20200508
  Transmission Date: 20200713
  Serious: No
  Sender: FDA-Public Use
  Company Number: US-ASTRAZENECA-2019SF42333

PATIENT
  Age: 668 Month
  Sex: Female
  Weight: 91.6 kg

DRUGS (1)
  1. FASENRA [Suspect]
     Active Substance: BENRALIZUMAB
     Indication: ASTHMA
     Dosage: 30 UNITS UNKNOWN 5TH SHOT ON 23-SEP-2019 AND 6TH SHOT ON 18-NOV-2019
     Route: 058

REACTIONS (9)
  - Asthma [Unknown]
  - Malaise [Unknown]
  - Crying [Unknown]
  - Injection site pain [Recovered/Resolved]
  - Drug ineffective [Not Recovered/Not Resolved]
  - Feeling abnormal [Unknown]
  - Drug hypersensitivity [Unknown]
  - Chest discomfort [Unknown]
  - Intentional product misuse [Unknown]

NARRATIVE: CASE EVENT DATE: 201909
